FAERS Safety Report 16136521 (Version 1)
Quarter: 2019Q1

REPORT INFORMATION
  Report Type: Report from Study
  Country: US (occurrence: US)
  Receive Date: 20190329
  Receipt Date: 20190329
  Transmission Date: 20190418
  Serious: Yes (Hospitalization)
  Sender: FDA-Public Use
  Company Number: US-ACTELION-A-NJ2017-157524

PATIENT
  Age: 70 Year
  Sex: Male
  Weight: 99.32 kg

DRUGS (6)
  1. OPSUMIT [Suspect]
     Active Substance: MACITENTAN
     Dosage: 10 MG, QD
     Route: 048
  2. ORENITRAM [Suspect]
     Active Substance: TREPROSTINIL
     Indication: PRODUCT USED FOR UNKNOWN INDICATION
     Dosage: 0.625 MG, TID
     Route: 065
  3. ADEMPAS [Concomitant]
     Active Substance: RIOCIGUAT
  4. OPSUMIT [Suspect]
     Active Substance: MACITENTAN
     Indication: PULMONARY ARTERIAL HYPERTENSION
     Dosage: 10 MG, QD
     Route: 048
  5. ORENITRAM [Suspect]
     Active Substance: TREPROSTINIL
     Dosage: 0.5 MG, TID
     Route: 065
  6. WARFARIN [Concomitant]
     Active Substance: WARFARIN

REACTIONS (23)
  - Contusion [Unknown]
  - Muscle atrophy [Unknown]
  - Hip fracture [Unknown]
  - Hypopnoea [Unknown]
  - Weight increased [Unknown]
  - Oedema peripheral [Unknown]
  - Nasal congestion [Unknown]
  - Cough [Unknown]
  - Oxygen saturation abnormal [Recovering/Resolving]
  - Pain in extremity [Unknown]
  - Palpitations [Unknown]
  - Asthenia [Unknown]
  - Dyspnoea exertional [Unknown]
  - Tinnitus [Unknown]
  - Muscular weakness [Unknown]
  - Balance disorder [Unknown]
  - Dyspnoea [Recovering/Resolving]
  - Sinusitis [Unknown]
  - Oxygen saturation decreased [Unknown]
  - Fall [Unknown]
  - Dyspnoea at rest [Unknown]
  - Nasopharyngitis [Unknown]
  - Fluid retention [Unknown]

NARRATIVE: CASE EVENT DATE: 201707
